FAERS Safety Report 8501266-9 (Version None)
Quarter: 2012Q3

REPORT INFORMATION
  Report Type: 
  Country: None (occurrence: None)
  Receive Date: 20120710
  Receipt Date: 20120621
  Transmission Date: 20120928
  Serious: Yes (Other)
  Sender: FDA-Public Use
  Company Number: US-CELGENEUS-163-50794-12070734

PATIENT
  Sex: Male
  Weight: 87.8 kg

DRUGS (1)
  1. VIDAZA [Suspect]
     Dosage: 18.75 MILLIGRAM
     Route: 048
     Dates: start: 20120531

REACTIONS (2)
  - PYREXIA [None]
  - PERICARDIAL EFFUSION [None]
